FAERS Safety Report 7783883-7 (Version None)
Quarter: 2011Q3

REPORT INFORMATION
  Report Type: 
  Country: None (occurrence: None)
  Receive Date: 20110928
  Receipt Date: 20110921
  Transmission Date: 20111222
  Serious: Yes (Hospitalization)
  Sender: FDA-Public Use
  Company Number: US-GLAXOSMITHKLINE-A0945892A

PATIENT
  Age: 78 Year
  Sex: Female

DRUGS (3)
  1. MELPHALAN HYDROCHLORIDE [Suspect]
     Indication: CHEMOTHERAPY
     Dosage: 14MG SEE DOSAGE TEXT
     Route: 042
     Dates: start: 20110222, end: 20110614
  2. VELCADE [Suspect]
     Indication: CHEMOTHERAPY
     Dosage: 2.1MG WEEKLY
     Route: 042
     Dates: start: 20110222, end: 20110614
  3. DECADRON [Suspect]
     Indication: CHEMOTHERAPY
     Dosage: 10MG UNKNOWN
     Route: 042
     Dates: start: 20110222, end: 20110614

REACTIONS (2)
  - FEBRILE NEUTROPENIA [None]
  - HIP FRACTURE [None]
